FAERS Safety Report 23948990 (Version 1)
Quarter: 2024Q2

REPORT INFORMATION
  Report Type: Spontaneous
  Country: AU (occurrence: AU)
  Receive Date: 20240607
  Receipt Date: 20240607
  Transmission Date: 20240716
  Serious: Yes (Hospitalization)
  Sender: FDA-Public Use
  Company Number: AU-JNJFOC-20231000608

PATIENT
  Age: 70 Year
  Sex: Female
  Weight: 62.5 kg

DRUGS (26)
  1. BORTEZOMIB [Suspect]
     Active Substance: BORTEZOMIB
     Indication: Plasma cell myeloma
     Dosage: 0.532 MG
     Route: 058
     Dates: start: 20221125, end: 20230303
  2. CYCLOPHOSPHAMIDE [Suspect]
     Active Substance: CYCLOPHOSPHAMIDE
     Indication: Plasma cell myeloma
     Dosage: 250 MG
     Route: 042
     Dates: start: 20230726, end: 20230728
  3. DEXAMETHASONE [Suspect]
     Active Substance: DEXAMETHASONE
     Indication: Plasma cell myeloma
     Dosage: 20 MG
     Route: 048
     Dates: start: 20221125, end: 20230608
  4. FLUDARABINE PHOSPHATE [Suspect]
     Active Substance: FLUDARABINE PHOSPHATE
     Indication: Plasma cell myeloma
     Dosage: 25 ML
     Route: 042
     Dates: start: 20230726, end: 20230728
  5. LENALIDOMIDE [Suspect]
     Active Substance: LENALIDOMIDE
     Indication: Plasma cell myeloma
     Dosage: 15 MG
     Route: 048
     Dates: start: 20221125, end: 20230607
  6. ASPIRIN [Concomitant]
     Active Substance: ASPIRIN
     Indication: Myocardial ischaemia
     Dosage: 100 MG (INTERVAL: 1 DAY)
     Route: 048
     Dates: start: 20170101
  7. BACTRIM [Concomitant]
     Active Substance: SULFAMETHOXAZOLE\TRIMETHOPRIM
     Indication: Prophylaxis
     Dosage: UNK (INTERVAL: 0 WEEK)
     Route: 048
     Dates: start: 20230731, end: 20240418
  8. ERGOCALCIFEROL [Concomitant]
     Active Substance: ERGOCALCIFEROL
     Indication: Osteoporosis
     Dosage: 1000 IU (INTERVAL: 1 DAY)
     Route: 048
     Dates: start: 20150101
  9. FLAREX [Concomitant]
     Active Substance: FLUOROMETHOLONE ACETATE
     Indication: Glaucoma
     Dosage: UNK (DOSE: 3 DROP(S); INTERVAL: 1 DAY)
     Route: 047
     Dates: start: 20150101
  10. MAGNESIUM [Concomitant]
     Active Substance: MAGNESIUM
     Indication: Mineral supplementation
     Dosage: 500 MG
     Route: 048
     Dates: start: 20230803
  11. NALOXONE HYDROCHLORIDE\OXYCODONE HYDROCHLORIDE [Concomitant]
     Active Substance: NALOXONE HYDROCHLORIDE\OXYCODONE HYDROCHLORIDE
     Indication: Pain
     Dosage: UNK
     Route: 065
  12. OMEPRAZOLE [Concomitant]
     Active Substance: DONEPEZIL HYDROCHLORIDE\OMEPRAZOLE\OMEPRAZOLE MAGNESIUM
     Indication: Gastrooesophageal reflux prophylaxis
     Dosage: 20 MG (INTERVAL: 1 DAY)
     Route: 048
     Dates: start: 20221124
  13. PREDNISOLONE [Concomitant]
     Active Substance: PREDNISOLONE
     Dosage: 10 MG (INTERVAL: 0 DAY)
     Route: 048
     Dates: start: 20231106, end: 20231113
  14. PREDNISOLONE [Concomitant]
     Active Substance: PREDNISOLONE
     Dosage: 14 MG (INTERVAL: 0 DAY)
     Route: 048
     Dates: start: 20231104, end: 20231106
  15. PREDNISOLONE [Concomitant]
     Active Substance: PREDNISOLONE
     Dosage: 15 MG (INTERVAL: 0 DAY)
     Route: 048
     Dates: start: 20231030, end: 20231103
  16. PREDNISOLONE [Concomitant]
     Active Substance: PREDNISOLONE
     Dosage: 15 MG (INTERVAL: 0 DAY)
     Route: 048
     Dates: start: 20231030, end: 20231103
  17. PREDNISOLONE [Concomitant]
     Active Substance: PREDNISOLONE
     Dosage: 15 MG (INTERVAL: 0 DAY)
     Route: 048
     Dates: start: 20231106, end: 20231113
  18. PREDNISOLONE [Concomitant]
     Active Substance: PREDNISOLONE
     Indication: Prophylaxis
     Dosage: 5 MG (INTERVAL: 1 DAY)
     Route: 048
     Dates: start: 20230914, end: 20230920
  19. PREDNISOLONE [Concomitant]
     Active Substance: PREDNISOLONE
     Dosage: 9 MG (INTERVAL: 0 DAY)
     Route: 048
     Dates: start: 20231114, end: 20231120
  20. TELMISARTAN [Concomitant]
     Active Substance: TELMISARTAN
     Indication: Hypertension
     Dosage: 40 MG ( INTERVAL: 1 DAY)
     Route: 048
     Dates: start: 20110101
  21. TEMAZEPAM [Concomitant]
     Active Substance: TEMAZEPAM
     Indication: Insomnia
     Dosage: 10 MG
     Route: 048
     Dates: start: 20230824
  22. TRUSOPT [Concomitant]
     Active Substance: DORZOLAMIDE HYDROCHLORIDE
     Indication: Glaucoma
     Dosage: 1 DROP (INTERVAL: 1 DAY)
     Route: 047
     Dates: start: 20150101
  23. VALACYCLOVIR HYDROCHLORIDE [Concomitant]
     Active Substance: VALACYCLOVIR HYDROCHLORIDE
     Indication: Prophylaxis
     Dosage: 500 MG (INTERVAL: 0 DAY)
     Route: 065
     Dates: start: 20221124, end: 20240418
  24. VITAMIN B3 [Concomitant]
     Active Substance: NIACIN
     Indication: Dyslipidaemia
     Dosage: 1500 MG (INTERVAL: 1 DAY)
     Route: 048
     Dates: start: 20230805
  25. VYTORIN [Concomitant]
     Active Substance: EZETIMIBE\SIMVASTATIN
     Indication: Dyslipidaemia
     Dosage: UNK
     Route: 048
     Dates: start: 20110101
  26. ZOLEDRONIC ACID [Concomitant]
     Active Substance: ZOLEDRONIC ACID
     Indication: Prophylaxis
     Dosage: 4 MG
     Route: 042
     Dates: start: 20230630

REACTIONS (5)
  - Facial paralysis [Recovered/Resolved]
  - Large intestine perforation [Recovered/Resolved]
  - Neuralgia [Recovered/Resolved]
  - Septic shock [Recovered/Resolved]
  - Polyneuropathy [Recovered/Resolved]

NARRATIVE: CASE EVENT DATE: 20230930
